FAERS Safety Report 10427727 (Version 1)
Quarter: 2014Q3

REPORT INFORMATION
  Report Type: Spontaneous
  Country: US (occurrence: US)
  Receive Date: 20140903
  Receipt Date: 20140903
  Transmission Date: 20150326
  Serious: Yes (Hospitalization, Other)
  Sender: FDA-Public Use
  Company Number: US-FRI-1000070278

PATIENT
  Age: 73 Year
  Sex: Male

DRUGS (9)
  1. AMLODIPINE [Concomitant]
     Active Substance: AMLODIPINE BESYLATE
     Dosage: 5 MG
  2. BABY ASPIRIN [Concomitant]
     Active Substance: ASPIRIN
     Dosage: 81 MG
     Route: 048
  3. POTASSIUM [Concomitant]
     Active Substance: POTASSIUM
  4. NAMENDA XR [Suspect]
     Active Substance: MEMANTINE HYDROCHLORIDE
     Dosage: 7 MG
     Route: 048
     Dates: start: 201407, end: 20140725
  5. CLOPIDOGREL [Concomitant]
     Active Substance: CLOPIDOGREL BISULFATE
     Dosage: 75 MG
  6. NAMENDA XR [Suspect]
     Active Substance: MEMANTINE HYDROCHLORIDE
     Indication: DEMENTIA
     Dosage: 28 MG
     Route: 048
     Dates: start: 20140617, end: 201407
  7. CARVEDILOL. [Concomitant]
     Active Substance: CARVEDILOL
  8. SIMVASTATIN. [Concomitant]
     Active Substance: SIMVASTATIN
  9. NAMENDA XR [Suspect]
     Active Substance: MEMANTINE HYDROCHLORIDE
     Dosage: 14 MG
     Route: 048
     Dates: start: 201407, end: 201407

REACTIONS (6)
  - Confusional state [Recovering/Resolving]
  - Abnormal behaviour [Recovered/Resolved]
  - Hallucination [Recovered/Resolved]
  - Faecaloma [Recovered/Resolved]
  - Urinary retention [Recovered/Resolved]
  - Faecal incontinence [Not Recovered/Not Resolved]

NARRATIVE: CASE EVENT DATE: 201406
